FAERS Safety Report 6527421-5 (Version None)
Quarter: 2010Q1

REPORT INFORMATION
  Report Type: 
  Country: None (occurrence: None)
  Receive Date: 20100105
  Receipt Date: 20091223
  Transmission Date: 20100710
  Serious: Yes (Other)
  Sender: FDA-Public Use
  Company Number: US-WATSON-2009-11194

PATIENT
  Age: 78 Year
  Sex: Male

DRUGS (1)
  1. ENALAPRIL MALEATE (WATSON LABORATORIES) [Suspect]
     Indication: DRUG USE FOR UNKNOWN INDICATION
     Dosage: UNK
     Route: 065

REACTIONS (2)
  - HYPERKALAEMIA [None]
  - PARALYSIS [None]
